FAERS Safety Report 10982063 (Version 49)
Quarter: 2022Q2

REPORT INFORMATION
  Report Type: Other
  Country: CA (occurrence: None)
  Receive Date: 20150403
  Receipt Date: 20220526
  Transmission Date: 20220720
  Serious: Yes (Other)
  Sender: FDA-Public Use
  Company Number: CA-ROCHE-1350337

PATIENT
  Sex: Female
  Weight: 48 kg

DRUGS (26)
  1. HERCEPTIN [Suspect]
     Active Substance: TRASTUZUMAB
     Indication: Breast cancer metastatic
     Dosage: DATE OF MOST RECENT DOSE 30/JAN/2014.
     Route: 042
     Dates: start: 201201, end: 201502
  2. HERCEPTIN [Suspect]
     Active Substance: TRASTUZUMAB
     Route: 042
     Dates: start: 20141218
  3. HERCEPTIN [Suspect]
     Active Substance: TRASTUZUMAB
     Route: 042
     Dates: start: 20160104, end: 2020
  4. HERCEPTIN [Suspect]
     Active Substance: TRASTUZUMAB
     Route: 042
     Dates: start: 20200513
  5. HERCEPTIN [Suspect]
     Active Substance: TRASTUZUMAB
     Route: 042
     Dates: start: 20200604, end: 20210729
  6. HERCEPTIN [Suspect]
     Active Substance: TRASTUZUMAB
     Route: 042
     Dates: start: 20210819
  7. HERCEPTIN [Suspect]
     Active Substance: TRASTUZUMAB
     Route: 042
  8. XELODA [Suspect]
     Active Substance: CAPECITABINE
     Indication: Product used for unknown indication
     Route: 065
     Dates: start: 201310
  9. KADCYLA [Suspect]
     Active Substance: ADO-TRASTUZUMAB EMTANSINE
     Indication: Breast cancer metastatic
     Dosage: PATIENT ID: KAD0080
     Route: 042
     Dates: start: 20140227, end: 20141127
  10. KADCYLA [Suspect]
     Active Substance: ADO-TRASTUZUMAB EMTANSINE
     Route: 042
     Dates: start: 20141218, end: 20150402
  11. KADCYLA [Suspect]
     Active Substance: ADO-TRASTUZUMAB EMTANSINE
     Route: 042
     Dates: start: 20160317
  12. KADCYLA [Suspect]
     Active Substance: ADO-TRASTUZUMAB EMTANSINE
     Route: 042
     Dates: start: 20140202, end: 20141127
  13. PERJETA [Suspect]
     Active Substance: PERTUZUMAB
     Indication: Breast cancer metastatic
     Route: 042
     Dates: start: 20160115, end: 20160115
  14. PERJETA [Suspect]
     Active Substance: PERTUZUMAB
     Dosage: PATIENT D: PERJ0245
     Route: 042
     Dates: start: 20160206
  15. PERJETA [Suspect]
     Active Substance: PERTUZUMAB
     Route: 042
     Dates: start: 20160203
  16. IVIGLOB EX [Suspect]
     Active Substance: HUMAN IMMUNOGLOBULIN G
     Indication: Product used for unknown indication
     Route: 042
  17. HEPARIN [Suspect]
     Active Substance: HEPARIN SODIUM
     Indication: Flushing
     Route: 065
  18. SOLU-MEDROL [Concomitant]
     Active Substance: METHYLPREDNISOLONE SODIUM SUCCINATE
     Route: 042
     Dates: start: 20140227, end: 20140320
  19. SOLU-MEDROL [Concomitant]
     Active Substance: METHYLPREDNISOLONE SODIUM SUCCINATE
     Route: 042
     Dates: start: 20140320, end: 20150402
  20. TAXOL [Concomitant]
     Active Substance: PACLITAXEL
     Indication: Product used for unknown indication
     Route: 065
     Dates: start: 201201, end: 2013
  21. TRAMADOL HYDROCHLORIDE [Concomitant]
     Active Substance: TRAMADOL HYDROCHLORIDE
     Indication: Pain
     Route: 065
     Dates: start: 20140220
  22. TRAMADOL HYDROCHLORIDE [Concomitant]
     Active Substance: TRAMADOL HYDROCHLORIDE
     Dates: start: 20140220
  23. BENADRYL [Concomitant]
     Active Substance: DIPHENHYDRAMINE HYDROCHLORIDE
     Route: 042
     Dates: start: 20140320, end: 20140813
  24. MAGNESIUM [Concomitant]
     Active Substance: MAGNESIUM
     Indication: Premedication
     Route: 042
  25. PACLITAXEL [Concomitant]
     Active Substance: PACLITAXEL
     Indication: Breast cancer
     Route: 065
     Dates: end: 201607
  26. PACLITAXEL [Concomitant]
     Active Substance: PACLITAXEL
     Dates: start: 201201, end: 2013

REACTIONS (59)
  - Hepatitis [Unknown]
  - Pain [Not Recovered/Not Resolved]
  - Asthenia [Not Recovered/Not Resolved]
  - Muscular weakness [Unknown]
  - Malignant neoplasm progression [Unknown]
  - Constipation [Not Recovered/Not Resolved]
  - Hyperaesthesia [Not Recovered/Not Resolved]
  - Abdominal pain [Unknown]
  - Tumour marker increased [Not Recovered/Not Resolved]
  - Headache [Unknown]
  - Nausea [Unknown]
  - Malaise [Unknown]
  - Dry throat [Unknown]
  - Sneezing [Unknown]
  - Hyperaesthesia [Unknown]
  - Pruritus [Unknown]
  - Blister [Unknown]
  - Eczema [Not Recovered/Not Resolved]
  - Dry skin [Unknown]
  - Fatigue [Unknown]
  - Hand dermatitis [Not Recovered/Not Resolved]
  - Electric shock sensation [Not Recovered/Not Resolved]
  - Gingival pain [Not Recovered/Not Resolved]
  - Skin fissures [Unknown]
  - Nausea [Not Recovered/Not Resolved]
  - Dry mouth [Not Recovered/Not Resolved]
  - Seasonal allergy [Unknown]
  - Dysmenorrhoea [Unknown]
  - Hypotension [Unknown]
  - Epistaxis [Not Recovered/Not Resolved]
  - Paraesthesia [Not Recovered/Not Resolved]
  - Nasopharyngitis [Unknown]
  - Weight decreased [Unknown]
  - Blood creatine phosphokinase increased [Not Recovered/Not Resolved]
  - Weight increased [Recovered/Resolved]
  - Vulvovaginal pain [Recovering/Resolving]
  - Urinary tract infection [Recovered/Resolved]
  - Blood magnesium decreased [Unknown]
  - Palpitations [Unknown]
  - Blood test abnormal [Unknown]
  - Injection site haemorrhage [Unknown]
  - Hyperaesthesia [Not Recovered/Not Resolved]
  - Weight decreased [Unknown]
  - Constipation [Recovered/Resolved]
  - Headache [Unknown]
  - Epistaxis [Unknown]
  - Recurrent cancer [Unknown]
  - Myalgia [Unknown]
  - Fatigue [Unknown]
  - Breast disorder [Not Recovered/Not Resolved]
  - Blood pressure systolic decreased [Unknown]
  - Stress [Unknown]
  - Faeces soft [Unknown]
  - Blood iron decreased [Unknown]
  - Hypotension [Unknown]
  - Blood pressure decreased [Unknown]
  - Blood pressure diastolic decreased [Unknown]
  - Heart rate decreased [Unknown]
  - Headache [Unknown]

NARRATIVE: CASE EVENT DATE: 20130101
